FAERS Safety Report 4477982-5 (Version None)
Quarter: 2004Q4

REPORT INFORMATION
  Report Type: 
  Country: None (occurrence: None)
  Receive Date: 20041004
  Receipt Date: 20040922
  Transmission Date: 20050328
  Serious: Yes (Hospitalization)
  Sender: FDA-Public Use
  Company Number: 200410319BBE

PATIENT
  Age: 66 Year
  Sex: Female
  Weight: 62.8 kg

DRUGS (8)
  1. GAMUNEX [Suspect]
     Dosage: INTRAVENOUS
     Route: 042
     Dates: start: 20040816
  2. PLENDIL [Concomitant]
  3. CLONIDINE HCL [Concomitant]
  4. ESTRADIOL [Concomitant]
  5. MEDROXYPROGESTERONE [Concomitant]
  6. RENAGEL [Concomitant]
  7. INSULIN PUMP [Concomitant]
  8. BENADRYL COMPLEX [Concomitant]

REACTIONS (3)
  - ATRIOVENTRICULAR BLOCK COMPLETE [None]
  - PARAESTHESIA [None]
  - SINUS BRADYCARDIA [None]
